FAERS Safety Report 6362021-1 (Version None)
Quarter: 2009Q3

REPORT INFORMATION
  Report Type: 
  Country: None (occurrence: None)
  Receive Date: 20090918
  Receipt Date: 20090910
  Transmission Date: 20100115
  Serious: Yes (Life-Threatening, Disabling, Other)
  Sender: FDA-Public Use
  Company Number: US-ABBOTT-09P-163-0576350-00

PATIENT
  Sex: Female
  Weight: 57 kg

DRUGS (30)
  1. HUMIRA [Suspect]
     Indication: RHEUMATOID ARTHRITIS
     Route: 058
     Dates: start: 20010216, end: 20090522
  2. IBUPROFEN [Concomitant]
     Indication: BACK PAIN
     Route: 048
     Dates: start: 20030101
  3. CEPHALEXIN [Concomitant]
     Indication: DERMAL CYST
     Route: 048
     Dates: start: 20090119, end: 20090202
  4. CEPHALEXIN [Concomitant]
     Indication: CYST RUPTURE
  5. IRON [Concomitant]
     Indication: ANAEMIA
     Route: 042
     Dates: start: 20081104
  6. CLODERM [Concomitant]
     Indication: DERMATITIS
     Route: 061
     Dates: start: 20090310, end: 20090324
  7. CLODERM [Concomitant]
     Route: 061
     Dates: start: 20090325, end: 20090408
  8. CLODERM [Concomitant]
     Route: 061
     Dates: start: 20090409, end: 20090423
  9. DESONIDE [Concomitant]
     Indication: DERMATITIS
     Route: 061
     Dates: start: 20090126, end: 20090209
  10. DESONIDE [Concomitant]
     Route: 061
     Dates: start: 20090210, end: 20090303
  11. DESONIDE [Concomitant]
     Route: 061
     Dates: start: 20090304
  12. FOSAMAX [Concomitant]
     Indication: OSTEOPENIA
     Route: 048
     Dates: start: 20030301
  13. TYLENOL (CAPLET) [Concomitant]
     Indication: BACK PAIN
     Route: 048
     Dates: start: 20030601
  14. LOVAZA [Concomitant]
     Indication: MEDICAL DIET
     Route: 048
     Dates: start: 19980101
  15. CITRACAL-D [Concomitant]
     Indication: MINERAL SUPPLEMENTATION
     Route: 048
     Dates: start: 19960101
  16. LIPITOR [Concomitant]
     Indication: HYPERLIPIDAEMIA
     Route: 048
     Dates: start: 20020901
  17. EVISTA [Concomitant]
     Indication: OSTEOARTHRITIS
     Route: 048
     Dates: start: 20061120
  18. PAXIL [Concomitant]
     Indication: ANXIETY
     Route: 048
     Dates: start: 20071205, end: 20080503
  19. PROMETHAZINE [Concomitant]
     Indication: COUGH
     Route: 048
     Dates: start: 20080407
  20. MULTI-VITAMIN [Concomitant]
     Indication: VITAMIN SUPPLEMENTATION
     Route: 048
     Dates: start: 20030101
  21. NIFEREX [Concomitant]
     Indication: MINERAL SUPPLEMENTATION
     Route: 048
     Dates: start: 20080728, end: 20080830
  22. PRILOSEC [Concomitant]
     Indication: ANAEMIA
     Route: 048
     Dates: start: 20081021
  23. FOLIC ACID [Concomitant]
     Indication: RHEUMATOID ARTHRITIS
     Route: 048
     Dates: start: 19980101
  24. PREDNISONE [Concomitant]
     Indication: RHEUMATOID ARTHRITIS
     Dates: start: 20081109, end: 20090205
  25. PREDNISONE [Concomitant]
     Route: 048
     Dates: start: 20081024, end: 20081028
  26. PREDNISONE [Concomitant]
     Route: 048
     Dates: start: 20081029, end: 20081102
  27. PREDNISONE [Concomitant]
     Route: 048
     Dates: start: 20081103, end: 20081107
  28. PREDNISONE [Concomitant]
     Route: 048
     Dates: start: 20090206
  29. METHOTREXATE [Concomitant]
     Indication: RHEUMATOID ARTHRITIS
     Route: 048
     Dates: start: 19960101
  30. KEFLEX [Concomitant]
     Indication: COUGH
     Route: 048
     Dates: start: 20080407, end: 20080421

REACTIONS (1)
  - NON-SMALL CELL LUNG CANCER STAGE IIIB [None]
